FAERS Safety Report 8434790-8 (Version None)
Quarter: 2012Q2

REPORT INFORMATION
  Report Type: 
  Country: None (occurrence: None)
  Receive Date: 20120614
  Receipt Date: 20120604
  Transmission Date: 20120825
  Serious: Yes (Other)
  Sender: FDA-Public Use
  Company Number: IT-JNJFOC-20120601901

PATIENT

DRUGS (10)
  1. DOXORUBICIN HCL [Suspect]
     Indication: B-CELL LYMPHOMA
     Dosage: IT WAS PERFORMED IN A GROUP WHICH WAS GIVEN R-CHOP FOR 14 DAYS AND R-CHOP FOR 21 DAYS.
     Route: 042
  2. RITUXIMAB [Suspect]
     Indication: DIFFUSE LARGE B-CELL LYMPHOMA
     Dosage: IT WAS PERFORMED IN A GROUP WHICH WAS GIVEN R-CHOP FOR 14 DAYS AND R-CHOP FOR 21 DAYS.
     Route: 065
  3. DOXORUBICIN HCL [Suspect]
     Indication: DIFFUSE LARGE B-CELL LYMPHOMA
     Dosage: IT WAS PERFORMED IN A GROUP WHICH WAS GIVEN R-CHOP FOR 14 DAYS AND R-CHOP FOR 21 DAYS.
     Route: 042
  4. VINCRISTINE [Suspect]
     Indication: DIFFUSE LARGE B-CELL LYMPHOMA
     Dosage: IT WAS PERFORMED IN A GROUP WHICH WAS GIVEN R-CHOP FOR 14 DAYS AND R-CHOP FOR 21 DAYS.
     Route: 065
  5. CYCLOPHOSPHAMIDE [Suspect]
     Indication: B-CELL LYMPHOMA
     Dosage: IT WAS PERFORMED IN A GROUP WHICH WAS GIVEN R-CHOP FOR 14 DAYS AND R-CHOP FOR 21 DAYS.
     Route: 065
  6. PREDNISOLONE [Suspect]
     Indication: DIFFUSE LARGE B-CELL LYMPHOMA
     Dosage: IT WAS PERFORMED IN A GROUP WHICH WAS GIVEN R-CHOP FOR 14 DAYS AND R-CHOP FOR 21 DAYS.
     Route: 065
  7. VINCRISTINE [Suspect]
     Indication: B-CELL LYMPHOMA
     Dosage: IT WAS PERFORMED IN A GROUP WHICH WAS GIVEN R-CHOP FOR 14 DAYS AND R-CHOP FOR 21 DAYS.
     Route: 065
  8. RITUXIMAB [Suspect]
     Indication: B-CELL LYMPHOMA
     Dosage: IT WAS PERFORMED IN A GROUP WHICH WAS GIVEN R-CHOP FOR 14 DAYS AND R-CHOP FOR 21 DAYS.
     Route: 065
  9. CYCLOPHOSPHAMIDE [Suspect]
     Indication: DIFFUSE LARGE B-CELL LYMPHOMA
     Dosage: IT WAS PERFORMED IN A GROUP WHICH WAS GIVEN R-CHOP FOR 14 DAYS AND R-CHOP FOR 21 DAYS.
     Route: 065
  10. PREDNISOLONE [Suspect]
     Indication: B-CELL LYMPHOMA
     Dosage: IT WAS PERFORMED IN A GROUP WHICH WAS GIVEN R-CHOP FOR 14 DAYS AND R-CHOP FOR 21 DAYS.
     Route: 065

REACTIONS (3)
  - TOXICITY TO VARIOUS AGENTS [None]
  - HAEMATOTOXICITY [None]
  - DIFFUSE LARGE B-CELL LYMPHOMA RECURRENT [None]
